FAERS Safety Report 11431120 (Version 1)
Quarter: 2015Q3

REPORT INFORMATION
  Report Type: Spontaneous
  Country: US (occurrence: US)
  Receive Date: 20150828
  Receipt Date: 20150828
  Transmission Date: 20151125
  Serious: No
  Sender: FDA-Public Use
  Company Number: PHEH2015US007826

PATIENT
  Sex: Female
  Weight: 60 kg

DRUGS (5)
  1. ESTRACE [Concomitant]
     Active Substance: ESTRADIOL
     Dosage: UNK, QW2
     Route: 067
  2. VIVELLE DOT [Suspect]
     Active Substance: ESTRADIOL
     Indication: PRODUCT USED FOR UNKNOWN INDICATION
     Dosage: 0.025 MG, UNK
     Route: 062
  3. ZOCOR [Concomitant]
     Active Substance: SIMVASTATIN
     Indication: PRODUCT USED FOR UNKNOWN INDICATION
     Dosage: 1 DF, QD
     Route: 065
  4. ESTRACE [Concomitant]
     Active Substance: ESTRADIOL
     Indication: PRODUCT USED FOR UNKNOWN INDICATION
     Dosage: 1 G, QD (FOR 2 WEEKS)
     Route: 067
  5. ESTRACE [Concomitant]
     Active Substance: ESTRADIOL
     Dosage: 1 G, EVERY THIRD NIGHT
     Route: 067

REACTIONS (9)
  - Application site infection [Unknown]
  - Hot flush [Unknown]
  - Application site hypersensitivity [Unknown]
  - Food poisoning [Unknown]
  - Atrophic vulvovaginitis [Unknown]
  - Vulvovaginal dryness [Unknown]
  - Osteoporosis [Unknown]
  - Application site erythema [Unknown]
  - Application site rash [Unknown]
